FAERS Safety Report 22024896 (Version 1)
Quarter: 2023Q1

REPORT INFORMATION
  Report Type: Spontaneous
  Country: US (occurrence: US)
  Receive Date: 20230223
  Receipt Date: 20230223
  Transmission Date: 20230418
  Serious: Yes (Hospitalization)
  Sender: FDA-Public Use
  Company Number: US-SA-SAC20230222000176

PATIENT
  Age: 27 Year
  Sex: Male

DRUGS (6)
  1. ELOCTATE [Suspect]
     Active Substance: EFMOROCTOCOG ALFA
     Indication: Factor VIII deficiency
     Dosage: 4000 U, BID (INFUSE 4000 UNITS (3600-4400) SLOW IV TWO TIMES DAILY AS DIRECTED)
     Route: 042
     Dates: start: 2022
  2. ELOCTATE [Suspect]
     Active Substance: EFMOROCTOCOG ALFA
     Indication: Factor VIII deficiency
     Dosage: 4000 U, BID (INFUSE 4000 UNITS (3600-4400) SLOW IV TWO TIMES DAILY AS DIRECTED)
     Route: 042
     Dates: start: 2022
  3. ELOCTATE [Suspect]
     Active Substance: EFMOROCTOCOG ALFA
     Indication: Arthropathy
     Dosage: 4000 U, BID (INFUSE 4000 UNITS (3600-4400) SLOW IV TWO TIMES DAILY AS DIRECTED)
     Route: 042
     Dates: start: 202212
  4. ELOCTATE [Suspect]
     Active Substance: EFMOROCTOCOG ALFA
     Indication: Arthropathy
     Dosage: 4000 U, BID (INFUSE 4000 UNITS (3600-4400) SLOW IV TWO TIMES DAILY AS DIRECTED)
     Route: 042
     Dates: start: 202212
  5. HEMLIBRA [Concomitant]
     Active Substance: EMICIZUMAB-KXWH
     Indication: Factor VIII deficiency
     Dosage: 360 MG, QOW (INJECT 360MG (2.4ML) EVERY 2 WEEKS)
     Route: 058
  6. HEMLIBRA [Concomitant]
     Active Substance: EMICIZUMAB-KXWH
     Indication: Arthropathy

REACTIONS (1)
  - Toothache [Unknown]

NARRATIVE: CASE EVENT DATE: 20230215
